FAERS Safety Report 5299345-5 (Version None)
Quarter: 2007Q2

REPORT INFORMATION
  Report Type: 
  Country: None (occurrence: None)
  Receive Date: 20070411
  Receipt Date: 20070411
  Transmission Date: 20071010
  Serious: Yes (Life-Threatening, Hospitalization, Disabling)
  Sender: FDA-Public Use
  Company Number: None

PATIENT
  Sex: Male
  Weight: 83.9154 kg

DRUGS (3)
  1. VIOXX [Suspect]
     Indication: GASTROINTESTINAL DISORDER
  2. TOPROL-XL [Concomitant]
  3. LIPITOR [Concomitant]

REACTIONS (1)
  - SWELLING [None]
